FAERS Safety Report 4608870-9 (Version None)
Quarter: 2005Q1

REPORT INFORMATION
  Report Type: 
  Country: None (occurrence: None)
  Receive Date: 20050311
  Receipt Date: 20050228
  Transmission Date: 20050727
  Serious: Yes (Hospitalization)
  Sender: FDA-Public Use
  Company Number: 2005033086

PATIENT
  Age: 14 Year
  Sex: Female
  Weight: 40.4 kg

DRUGS (1)
  1. GENOTROPIN [Suspect]
     Indication: TURNER'S SYNDROME
     Dosage: 12.95 MG, WEEKLY/7 INJECTION WEEKLY
     Dates: start: 19981001

REACTIONS (1)
  - OOPHORECTOMY [None]
